FAERS Safety Report 8672589 (Version 2)
Quarter: 2013Q4

REPORT INFORMATION
  Report Type: Spontaneous
  Country: GB (occurrence: GB)
  Receive Date: 20120719
  Receipt Date: 20131108
  Transmission Date: 20140711
  Serious: Yes (Other)
  Sender: FDA-Public Use
  Company Number: GB-MSD-1207GBR000601

PATIENT
  Age: 65 Year
  Sex: Male

DRUGS (3)
  1. ZOCOR [Suspect]
     Dosage: UNK
     Route: 048
     Dates: start: 20120615, end: 20120621
  2. BISOPROLOL [Suspect]
     Dosage: UNK
     Route: 048
     Dates: start: 20120615, end: 20120621
  3. ASPIRIN [Concomitant]
     Dosage: UNK

REACTIONS (2)
  - Blister [Recovering/Resolving]
  - Rash [Recovering/Resolving]
